FAERS Safety Report 15331531 (Version 1)
Quarter: 2018Q4

REPORT INFORMATION
  Report Type: Report from Study
  Country: US (occurrence: US)
  Receive Date: 20180829
  Receipt Date: 20180829
  Transmission Date: 20190204
  Serious: No
  Sender: FDA-Public Use
  Company Number: US-DOVA PHARMACEUTICALS INC.-DOV-000142

PATIENT
  Sex: Female

DRUGS (1)
  1. DOPTELET [Suspect]
     Active Substance: AVATROMBOPAG MALEATE
     Indication: HEPATIC FAILURE
     Dosage: 2 TABLETS DAILY FOR 5 DAYS
     Route: 048
     Dates: start: 201807

REACTIONS (1)
  - Headache [Unknown]
